FAERS Safety Report 9185945 (Version 1)
Quarter: 2013Q1

REPORT INFORMATION
  Report Type: Report from Study
  Country: AR (occurrence: AR)
  Receive Date: 20130325
  Receipt Date: 20130325
  Transmission Date: 20140127
  Serious: Yes (Hospitalization)
  Sender: FDA-Public Use
  Company Number: AR-AMGEN-US255881

PATIENT
  Age: 79 Year
  Sex: Female

DRUGS (8)
  1. DARBEPOETIN ALFA [Suspect]
     Indication: CARDIAC FAILURE
     Dosage: UNK BLINDED, Q2WK
     Route: 058
     Dates: start: 20071127, end: 20080219
  2. VITAMINS [Concomitant]
     Dosage: UNK UNK, UNK
     Route: 065
  3. ENALAPRIL [Concomitant]
     Dosage: 15 MG, QD
     Route: 065
  4. FUROSEMIDE [Concomitant]
     Dosage: 40 MG, QD
     Route: 065
  5. CARVEDILOL [Concomitant]
     Dosage: 18.75 MG, QD
     Route: 065
  6. SPIRONOLACTONE [Concomitant]
     Dosage: 25 MG, QD
     Route: 065
  7. SIMVASTATIN [Concomitant]
     Dosage: 20 MG, QD
     Route: 065
  8. ACENOCOUMAROL [Concomitant]
     Dosage: UNK UNK, UNK
     Route: 065

REACTIONS (2)
  - Cardiac failure acute [Recovered/Resolved]
  - Renal failure chronic [Recovered/Resolved]
